FAERS Safety Report 21372602 (Version 1)
Quarter: 2022Q3

REPORT INFORMATION
  Report Type: Spontaneous
  Country: US (occurrence: US)
  Receive Date: 20220924
  Receipt Date: 20220924
  Transmission Date: 20221026
  Serious: Yes (Hospitalization, Other)
  Sender: FDA-Public Use
  Company Number: US-Shilpa Medicare Limited-SML-US-2022-01144

PATIENT
  Age: 68 Year
  Sex: Male

DRUGS (2)
  1. GEMCITABINE [Suspect]
     Active Substance: GEMCITABINE
     Indication: Transitional cell carcinoma
     Dates: start: 202105
  2. CARBOPLATIN [Suspect]
     Active Substance: CARBOPLATIN
     Indication: Transitional cell carcinoma
     Dosage: REDUCED
     Dates: start: 202105

REACTIONS (5)
  - Escherichia sepsis [Recovered/Resolved]
  - Febrile neutropenia [Recovered/Resolved]
  - Myelosuppression [Unknown]
  - Infection [Unknown]
  - Cancer with a high tumour mutational burden [Unknown]
